FAERS Safety Report 10298624 (Version 2)
Quarter: 2014Q3

REPORT INFORMATION
  Report Type: Spontaneous
  Country: FR (occurrence: FR)
  Receive Date: 20140711
  Receipt Date: 20140724
  Transmission Date: 20150326
  Serious: Yes (Hospitalization)
  Sender: FDA-Public Use
  Company Number: FR-PFIZER INC-2014189941

PATIENT
  Age: 70 Year
  Sex: Female

DRUGS (1)
  1. TRITACE [Suspect]
     Active Substance: RAMIPRIL
     Dosage: 2.5 MG, DAILY
     Route: 065
     Dates: start: 20140701, end: 20140702

REACTIONS (3)
  - Overdose [Recovered/Resolved]
  - Confusional state [Recovered/Resolved]
  - Fall [Recovered/Resolved]

NARRATIVE: CASE EVENT DATE: 20140702
